FAERS Safety Report 9490547 (Version 1)
Quarter: 2013Q3

REPORT INFORMATION
  Report Type: Spontaneous
  Country: IE (occurrence: IE)
  Receive Date: 20130830
  Receipt Date: 20130830
  Transmission Date: 20140515
  Serious: Yes (Hospitalization)
  Sender: FDA-Public Use
  Company Number: IE-ELI_LILLY_AND_COMPANY-IE201308006474

PATIENT
  Sex: Female

DRUGS (1)
  1. HUMALOG LISPRO [Suspect]

REACTIONS (1)
  - Blood glucose increased [Unknown]
